FAERS Safety Report 18127885 (Version 2)
Quarter: 2021Q3

REPORT INFORMATION
  Report Type: Spontaneous
  Country: US (occurrence: US)
  Receive Date: 20200810
  Receipt Date: 20210706
  Transmission Date: 20211014
  Serious: Yes (Death, Other)
  Sender: FDA-Public Use
  Company Number: US-GLAXOSMITHKLINE-US2020154373

PATIENT

DRUGS (4)
  1. ZANTAC [Suspect]
     Active Substance: RANITIDINE HYDROCHLORIDE
  2. ZANTAC [Suspect]
     Active Substance: RANITIDINE HYDROCHLORIDE
     Indication: GASTRIC CANCER
     Dosage: OCCASIONAL||BOTH
     Route: 065
     Dates: start: 199801, end: 201001
  3. ZANTAC [Suspect]
     Active Substance: RANITIDINE HYDROCHLORIDE
     Indication: GASTRIC CANCER
     Dosage: OCCASIONAL||BOTH
     Route: 065
     Dates: start: 199801, end: 201001
  4. RANITIDINE. [Suspect]
     Active Substance: RANITIDINE
     Route: 065

REACTIONS (3)
  - Gastric cancer [Unknown]
  - Neoplasm malignant [Fatal]
  - Prostate cancer [Unknown]
